FAERS Safety Report 7708781-6 (Version None)
Quarter: 2011Q3

REPORT INFORMATION
  Report Type: 
  Country: None (occurrence: None)
  Receive Date: 20110824
  Receipt Date: 20110824
  Transmission Date: 20111222
  Serious: Yes (Hospitalization)
  Sender: FDA-Public Use
  Company Number: None

PATIENT
  Sex: Male
  Weight: 87 kg

DRUGS (5)
  1. RITUXIMAB (MOAB C2B8 ANTI CD20, CHIMERIC) [Suspect]
     Dosage: 765 MG
  2. VINCRISTINE SULFATE [Suspect]
     Dosage: 2 MG
  3. PREDNISONE [Suspect]
     Dosage: 400 MG
  4. DOXORUBICIN HYDROCHLORIDE [Suspect]
     Dosage: 102 MG
  5. CYCLOPHOSPHAMIDE [Suspect]
     Dosage: 1730 MG

REACTIONS (6)
  - PYREXIA [None]
  - NEUTROPENIA [None]
  - DIARRHOEA [None]
  - DEHYDRATION [None]
  - CLOSTRIDIUM TEST POSITIVE [None]
  - WHITE BLOOD CELL COUNT DECREASED [None]
